FAERS Safety Report 6558035-9 (Version None)
Quarter: 2010Q1

REPORT INFORMATION
  Report Type: 
  Country: None (occurrence: None)
  Receive Date: 20100129
  Receipt Date: 20100122
  Transmission Date: 20100710
  Serious: Yes (Death)
  Sender: FDA-Public Use
  Company Number: IT-ROCHE-446767

PATIENT
  Sex: Male
  Weight: 97 kg

DRUGS (2)
  1. BEVACIZUMAB [Suspect]
     Dosage: LAST DOSE PRIOR TO SAE ON 28 MARCH 2006. ROUTE REPORTED: E.V.
     Route: 042
     Dates: start: 20050902
  2. CAPECITABINE [Suspect]
     Dosage: LAST DOSE PRIOR TO SAE ON 06 APRIL 2006. ROUTE REPORTED: E.V.
     Route: 042
     Dates: start: 20050902

REACTIONS (1)
  - PULMONARY MICROEMBOLI [None]
